FAERS Safety Report 6601398-6 (Version None)
Quarter: 2010Q1

REPORT INFORMATION
  Report Type: 
  Country: None (occurrence: None)
  Receive Date: 20100225
  Receipt Date: 20100216
  Transmission Date: 20100710
  Serious: Yes (Hospitalization)
  Sender: FDA-Public Use
  Company Number: US-PFIZER INC-2009189160

PATIENT
  Sex: Female

DRUGS (2)
  1. LIPITOR [Suspect]
     Indication: DYSLIPIDAEMIA
     Dosage: UNK
     Dates: start: 20040101
  2. CRESTOR [Suspect]
     Indication: DYSLIPIDAEMIA
     Dosage: 5 MG, 1X/DAY

REACTIONS (4)
  - BONE MARROW FAILURE [None]
  - INTERVERTEBRAL DISC DISORDER [None]
  - PRURITUS [None]
  - STAPHYLOCOCCAL INFECTION [None]
